FAERS Safety Report 11925967 (Version 2)
Quarter: 2016Q3

REPORT INFORMATION
  Report Type: Spontaneous
  Country: DE (occurrence: DE)
  Receive Date: 20160119
  Receipt Date: 20160824
  Transmission Date: 20161109
  Serious: Yes (Hospitalization)
  Sender: FDA-Public Use
  Company Number: DE-AMGEN-DEUSP2016005134

PATIENT
  Age: 60 Year
  Sex: Female

DRUGS (1)
  1. ENBREL [Suspect]
     Active Substance: ETANERCEPT
     Indication: PSORIATIC ARTHROPATHY
     Dosage: 50 MG, WEEKLY
     Route: 065
     Dates: start: 20121101

REACTIONS (5)
  - Arthralgia [Unknown]
  - Sensitivity to weather change [Unknown]
  - Pyrexia [Unknown]
  - Sinusitis [Unknown]
  - Nasopharyngitis [Not Recovered/Not Resolved]
